FAERS Safety Report 20175008 (Version 5)
Quarter: 2022Q1

REPORT INFORMATION
  Report Type: Other
  Country: DE (occurrence: DE)
  Receive Date: 20211213
  Receipt Date: 20220309
  Transmission Date: 20220423
  Serious: Yes (Hospitalization, Other)
  Sender: FDA-Public Use
  Company Number: None

PATIENT
  Age: 82 Year
  Sex: Female

DRUGS (14)
  1. IBUPROFEN [Suspect]
     Active Substance: IBUPROFEN
     Indication: Parkinson^s disease
     Dosage: 200 MILLIGRAM, EVERY 8 HOURS
     Route: 065
  2. DOXEPIN HYDROCHLORIDE [Suspect]
     Active Substance: DOXEPIN HYDROCHLORIDE
     Indication: Insomnia
     Dosage: 12.5 MILLIGRAM PER DAY (APONAL)
     Route: 065
  3. DOXEPIN HYDROCHLORIDE [Suspect]
     Active Substance: DOXEPIN HYDROCHLORIDE
     Dosage: 12.5 MILLIGRAM
     Route: 065
  4. OLANZAPINE [Suspect]
     Active Substance: OLANZAPINE
     Indication: Parkinson^s disease
     Dosage: 15 MILLIGRAM, QD
     Route: 065
  5. OLANZAPINE [Suspect]
     Active Substance: OLANZAPINE
     Dosage: UNK
     Route: 065
  6. CHOLECALCIFEROL [Suspect]
     Active Substance: CHOLECALCIFEROL
     Indication: Parkinson^s disease
     Dosage: 1 INTERNATIONAL UNIT, QD
     Route: 065
  7. CHOLECALCIFEROL [Suspect]
     Active Substance: CHOLECALCIFEROL
     Dosage: 1000 INTERNATIONAL UNIT, QD
     Route: 065
  8. URSODIOL [Suspect]
     Active Substance: URSODIOL
     Indication: Parkinson^s disease
     Dosage: 500 MILLIGRAM, QD
     Route: 065
  9. PANTOPRAZOLE [Suspect]
     Active Substance: PANTOPRAZOLE
     Indication: Parkinson^s disease
     Dosage: 20 MILLIGRAM, QD
     Route: 065
  10. ALENDRONIC ACID [Suspect]
     Active Substance: ALENDRONIC ACID
     Indication: Parkinson^s disease
     Dosage: 70 MILLIGRAM PER WEEK
     Route: 065
  11. METAMIZOLE [Suspect]
     Active Substance: METAMIZOLE
     Indication: Parkinson^s disease
     Dosage: 500 MILLIGRAM, EVERY 12 HRS
     Route: 065
  12. LEVOTHYROXINE [Suspect]
     Active Substance: LEVOTHYROXINE
     Indication: Parkinson^s disease
     Dosage: 62.5 MICROGRAM, QD
     Route: 016
  13. CANDESARTAN [Suspect]
     Active Substance: CANDESARTAN
     Indication: Parkinson^s disease
     Dosage: 16 MILLIGRAM, QD
     Route: 065
  14. MIRTAZAPINE [Suspect]
     Active Substance: MIRTAZAPINE
     Indication: Parkinson^s disease
     Dosage: 30 MILLIGRAM, QD
     Route: 065

REACTIONS (7)
  - Psychotic symptom [Unknown]
  - Major depression [Unknown]
  - Major depression [Unknown]
  - Insomnia [Unknown]
  - Drug ineffective [Unknown]
  - Therapeutic product effect incomplete [Unknown]
  - Off label use [Unknown]
